FAERS Safety Report 9116165 (Version 6)
Quarter: 2013Q3

REPORT INFORMATION
  Report Type: Spontaneous
  Country: US (occurrence: US)
  Receive Date: 20130225
  Receipt Date: 20130814
  Transmission Date: 20140515
  Serious: Yes (Hospitalization)
  Sender: FDA-Public Use
  Company Number: US-009507513-1302USA010996

PATIENT
  Age: 71 Year
  Sex: Female

DRUGS (8)
  1. REMERON [Suspect]
     Dosage: 30 MG, HS
     Route: 048
     Dates: start: 201212
  2. REMERON [Suspect]
     Dosage: 30 MG, HS
     Route: 048
     Dates: start: 20130108
  3. REMERON [Suspect]
     Dosage: 30 MG, HS
     Route: 048
     Dates: start: 20130206
  4. REMERON [Suspect]
     Dosage: 30 MG, QD
     Route: 048
     Dates: start: 20130227
  5. REMERON [Suspect]
     Dosage: 30 MG, HS
     Route: 048
     Dates: start: 20130318
  6. REMERON [Suspect]
     Dosage: 15 MG, UNK
     Route: 048
  7. KLONOPIN [Concomitant]
     Dosage: 1 TO 2 TABLETS, AT BEDTIME AS NEEDED
     Route: 048
     Dates: start: 20130227
  8. HALOPERIDOL [Concomitant]

REACTIONS (7)
  - Insomnia [Not Recovered/Not Resolved]
  - Feeling abnormal [Unknown]
  - Palpitations [Unknown]
  - Nightmare [Unknown]
  - Drug ineffective [Unknown]
  - Diarrhoea [Unknown]
  - Nausea [Unknown]
